FAERS Safety Report 7730124-2 (Version None)
Quarter: 2011Q3

REPORT INFORMATION
  Report Type: 
  Country: None (occurrence: None)
  Receive Date: 20110906
  Receipt Date: 20110829
  Transmission Date: 20111222
  Serious: Yes (Hospitalization)
  Sender: FDA-Public Use
  Company Number: PHHY2011CR77019

PATIENT
  Age: 90 Year
  Sex: Female

DRUGS (6)
  1. CYMBALTA [Suspect]
     Dosage: 60 MG PER DAY
     Route: 048
  2. EXELON [Suspect]
     Indication: DEMENTIA ALZHEIMER'S TYPE
     Dosage: ONE PATCH 5 PER DAY
     Route: 062
  3. CANDESARTAN CILEXETIL [Concomitant]
     Dosage: UNK UKN, UNK
  4. PRISTIQ [Concomitant]
     Indication: DEPRESSION
     Dosage: 50 MG, QD
     Route: 048
     Dates: start: 20100701
  5. EXELON [Suspect]
     Dosage: ONE PATCH 5 PER DAY
     Route: 062
     Dates: end: 20110301
  6. EXELON [Suspect]
     Dosage: ONE PATCH 10 PER DAY
     Route: 062

REACTIONS (2)
  - SUBILEUS [None]
  - DEPRESSION [None]
